FAERS Safety Report 7085736-9 (Version None)
Quarter: 2010Q4

REPORT INFORMATION
  Report Type: 
  Country: None (occurrence: None)
  Receive Date: 20101105
  Receipt Date: 20101027
  Transmission Date: 20110411
  Serious: Yes (Death, Other)
  Sender: FDA-Public Use
  Company Number: CA-GENENTECH-307836

PATIENT
  Sex: Male

DRUGS (10)
  1. RITUXIMAB [Suspect]
     Indication: B-CELL LYMPHOMA
     Dosage: 790 MG, UNK
     Route: 042
     Dates: start: 20040319
  2. RITUXIMAB [Suspect]
     Dosage: 800 MG, UNK
     Route: 042
     Dates: start: 20041015, end: 20041206
  3. INTERFERON ALFA [Suspect]
     Indication: B-CELL LYMPHOMA
     Dosage: UNK
     Route: 065
     Dates: start: 20041015, end: 20070117
  4. CYCLOPHOSPHAMIDE [Suspect]
     Indication: B-CELL LYMPHOMA
     Dosage: 2100 MG, UNK
     Route: 042
     Dates: start: 20021209, end: 20030822
  5. CYCLOPHOSPHAMIDE [Suspect]
     Dosage: 1750 MG, UNK
     Route: 042
     Dates: start: 20040227, end: 20040507
  6. VINCRISTINE [Suspect]
     Indication: B-CELL LYMPHOMA
     Dosage: 2 MG, UNK
     Route: 042
     Dates: start: 20021209, end: 20030822
  7. VINCRISTINE [Suspect]
     Dosage: 2 MG, UNK
     Route: 042
     Dates: start: 20040227, end: 20040507
  8. PREDNISONE [Suspect]
     Indication: B-CELL LYMPHOMA
     Dosage: 50 MG, UNK
     Route: 065
     Dates: start: 20021209, end: 20030822
  9. PREDNISONE [Suspect]
     Dosage: 50 MG, UNK
     Route: 065
     Dates: start: 20040227, end: 20040507
  10. DOXORUBICIN HCL [Suspect]
     Indication: B-CELL LYMPHOMA
     Dosage: UNK
     Route: 065
     Dates: start: 20040227, end: 20040507

REACTIONS (1)
  - ACUTE LYMPHOCYTIC LEUKAEMIA [None]
